FAERS Safety Report 4884968-5 (Version None)
Quarter: 2006Q1

REPORT INFORMATION
  Report Type: 
  Country: None (occurrence: None)
  Receive Date: 20060117
  Receipt Date: 20060105
  Transmission Date: 20060701
  Serious: Yes (Other)
  Sender: FDA-Public Use
  Company Number: 2006004977

PATIENT
  Age: 68 Year
  Sex: Male

DRUGS (3)
  1. TIKOSYN [Suspect]
     Indication: ATRIAL FIBRILLATION
     Dosage: 500 MCG (250 MCG, BID INTERVAL: EVERY DAY),
     Dates: start: 20051101
  2. COUMADIN [Suspect]
     Indication: ILL-DEFINED DISORDER
     Dates: start: 20051101
  3. LAC-HYDRIN (AMMONIUM LACTATE) [Concomitant]

REACTIONS (6)
  - ARTHRALGIA [None]
  - CONDITION AGGRAVATED [None]
  - EPISTAXIS [None]
  - PENILE HAEMORRHAGE [None]
  - POST PROCEDURAL HAEMORRHAGE [None]
  - RECTAL HAEMORRHAGE [None]
